FAERS Safety Report 5383387-5 (Version None)
Quarter: 2007Q3

REPORT INFORMATION
  Report Type: 
  Country: None (occurrence: None)
  Receive Date: 20070710
  Receipt Date: 20070629
  Transmission Date: 20080115
  Serious: Yes (Hospitalization, Disabling)
  Sender: FDA-Public Use
  Company Number: BR-PFIZER INC-2007054444

PATIENT
  Age: 82 Year
  Sex: Female

DRUGS (6)
  1. ALDACTONE [Suspect]
     Route: 048
  2. CARVEDILOL [Concomitant]
  3. CAPTOPRIL [Concomitant]
  4. AAS [Concomitant]
     Route: 048
  5. ATORVASTATIN [Concomitant]
  6. MONOCORDIL [Concomitant]

REACTIONS (1)
  - CEREBROVASCULAR ACCIDENT [None]
